FAERS Safety Report 16041027 (Version 1)
Quarter: 2019Q1

REPORT INFORMATION
  Report Type: Spontaneous
  Country: US (occurrence: US)
  Receive Date: 20190306
  Receipt Date: 20190306
  Transmission Date: 20190418
  Serious: No
  Sender: FDA-Public Use
  Company Number: US-AKORN PHARMACEUTICALS-2018AKN01337

PATIENT
  Age: 45 Year
  Sex: Female
  Weight: 65 kg

DRUGS (8)
  1. MYORISAN [Suspect]
     Active Substance: ISOTRETINOIN
     Dosage: 10 MG, 1X/DAY
     Route: 048
     Dates: start: 20180709, end: 20180813
  2. MYORISAN [Suspect]
     Active Substance: ISOTRETINOIN
     Indication: ACNE
     Dosage: 20 MG, 1X/DAY
     Route: 048
     Dates: start: 20170502, end: 2017
  3. VITAMIN E [Concomitant]
     Active Substance: .ALPHA.-TOCOPHEROL
  4. MYORISAN [Suspect]
     Active Substance: ISOTRETINOIN
     Dosage: 20 MG, 1X/DAY
     Route: 048
     Dates: start: 20170927, end: 2017
  5. MYORISAN [Suspect]
     Active Substance: ISOTRETINOIN
     Dosage: 10 MG, 1X/DAY
     Route: 048
     Dates: start: 20171103, end: 20171206
  6. MYORISAN [Suspect]
     Active Substance: ISOTRETINOIN
     Dosage: 10 MG, 1X/DAY
     Route: 048
     Dates: start: 20180108, end: 20180604
  7. MYORISAN [Suspect]
     Active Substance: ISOTRETINOIN
     Indication: ACNE
     Dosage: 10 MG, 1X/DAY
     Route: 048
     Dates: start: 20170607, end: 2017
  8. MULTIVITAMIN [Concomitant]
     Active Substance: VITAMINS

REACTIONS (3)
  - Aspartate aminotransferase increased [Recovering/Resolving]
  - Off label use [Recovered/Resolved]
  - Alanine aminotransferase increased [Recovering/Resolving]

NARRATIVE: CASE EVENT DATE: 20170603
